FAERS Safety Report 4374041-7 (Version None)
Quarter: 2004Q2

REPORT INFORMATION
  Report Type: 
  Country: None (occurrence: None)
  Receive Date: 20040607
  Receipt Date: 20040601
  Transmission Date: 20050107
  Serious: Yes (Life-Threatening, Other)
  Sender: FDA-Public Use
  Company Number: 200415553GDDC

PATIENT
  Age: 62 Year
  Sex: Male

DRUGS (8)
  1. KLEXANE [Suspect]
     Indication: THROMBOSIS PROPHYLAXIS
     Dates: start: 20040518
  2. ALVEDON [Concomitant]
     Dates: start: 20040519
  3. PROPOFOL [Concomitant]
     Dates: start: 20040519, end: 20040519
  4. RINGER-ACETAT ^TRAVENOL^ [Concomitant]
     Dates: start: 20040519, end: 20040519
  5. REHYDREX MED GLUKOS [Concomitant]
     Dates: start: 20040519, end: 20040519
  6. STESOLID [Concomitant]
     Dates: start: 20040519, end: 20040519
  7. ZINACEF [Concomitant]
     Dates: start: 20040519, end: 20040519
  8. REHYDREX MED GLUKOS [Concomitant]
     Dates: start: 20040520, end: 20040520

REACTIONS (1)
  - CARDIAC ARREST [None]
